FAERS Safety Report 7074093-X (Version None)
Quarter: 2010Q4

REPORT INFORMATION
  Report Type: 
  Country: None (occurrence: None)
  Receive Date: 20101029
  Receipt Date: 20101019
  Transmission Date: 20110411
  Serious: Yes (Hospitalization, Other)
  Sender: FDA-Public Use
  Company Number: NZ-JNJFOC-20100510111

PATIENT
  Sex: Female
  Weight: 83 kg

DRUGS (14)
  1. BLINDED; GOLIMUMA [Suspect]
     Indication: RHEUMATOID ARTHRITIS
     Route: 042
  2. BLINDED; GOLIMUMA [Suspect]
     Route: 042
  3. PLACEBO [Suspect]
     Indication: RHEUMATOID ARTHRITIS
  4. PLACEBO [Suspect]
  5. FOLIC ACID [Concomitant]
     Indication: PROPHYLAXIS
  6. MAXIDEX (EYE DROPS) [Concomitant]
     Indication: CORNEAL TRANSPLANT
  7. ETIDRONATE DISODIUM [Concomitant]
     Indication: OSTEOPOROSIS
  8. CALCIUM [Concomitant]
     Indication: OSTEOPOROSIS
  9. CHOLECALCIFEROL [Concomitant]
     Indication: OSTEOPOROSIS
  10. PARACETAMOL [Concomitant]
     Indication: RHEUMATOID ARTHRITIS
  11. DILTIAZEM [Concomitant]
     Indication: RAYNAUD'S PHENOMENON
  12. DILTIAZEM [Concomitant]
     Indication: RAYNAUD'S PHENOMENON
     Route: 048
  13. CILAZAPRIL [Concomitant]
     Route: 048
  14. HYDROCHLOROTHIAZIDE [Concomitant]
     Route: 048

REACTIONS (1)
  - LUNG ADENOCARCINOMA [None]
